FAERS Safety Report 9206911 (Version 2)
Quarter: 2014Q1

REPORT INFORMATION
  Report Type: Spontaneous
  Country: US (occurrence: US)
  Receive Date: 20130403
  Receipt Date: 20140311
  Transmission Date: 20141002
  Serious: Yes (Hospitalization, Other)
  Sender: FDA-Public Use
  Company Number: US-SANOFI-AVENTIS-2013SA034539

PATIENT
  Age: 53 Year
  Sex: Female

DRUGS (22)
  1. PLAVIX [Suspect]
     Route: 048
     Dates: start: 2003, end: 201302
  2. ASPIRIN [Concomitant]
     Route: 065
     Dates: end: 201302
  3. TOPAMAX [Concomitant]
     Indication: MIGRAINE
     Dosage: DOSE: 100 MG DURING THE DAY + 50 MG AT BEDTIME
     Route: 065
  4. DILAUDID [Concomitant]
     Indication: PAIN
  5. DILAUDID [Concomitant]
     Indication: FIBROMYALGIA
  6. FENTANYL [Concomitant]
     Indication: PAIN
     Dosage: FREQUENCY: @ 72 HRS
     Route: 065
  7. XANAX [Concomitant]
     Route: 065
  8. ZYRTEC [Concomitant]
     Dosage: 1 TABLETS DURING THE DAY
  9. SINGULAIR [Concomitant]
     Dosage: 1 TABLET AT NIGHT TIME
  10. LEVOTHYROXINE [Concomitant]
     Route: 065
  11. ZOFRAN [Concomitant]
     Route: 065
  12. CELEXA [Concomitant]
     Route: 065
  13. RANEXA [Concomitant]
     Dosage: DOSE: 500 MG ONE IN THE MORNING + 1 IN EVENING
     Route: 065
  14. NITRO-SPRAY [Concomitant]
     Route: 065
  15. MAXALT [Concomitant]
     Indication: MIGRAINE
  16. ACYCLOVIR [Concomitant]
     Indication: ORAL HERPES
     Dosage: DOSE:1 TABLET
     Route: 065
  17. DOCUSATE SODIUM [Concomitant]
     Indication: ABNORMAL FAECES
     Route: 065
  18. ROBAXIN [Concomitant]
     Indication: MUSCLE SPASMS
  19. FUROSEMIDE [Concomitant]
     Indication: DEHYDRATION
     Dosage: 40 MG BID AS NEEDED
     Route: 065
  20. MIRALAX [Concomitant]
     Indication: CONSTIPATION
  21. ALL OTHER THERAPEUTIC PRODUCTS [Concomitant]
     Route: 065
  22. ALL OTHER THERAPEUTIC PRODUCTS [Concomitant]
     Indication: BLOOD CHOLESTEROL
     Dosage: DOSE: 3 CAPSULES IN MORNING AND 3 AT BEDTIME
     Route: 065

REACTIONS (11)
  - Pulmonary fibrosis [Not Recovered/Not Resolved]
  - Condition aggravated [Not Recovered/Not Resolved]
  - Disease progression [Not Recovered/Not Resolved]
  - Asthenia [Unknown]
  - Pulmonary embolism [Recovered/Resolved]
  - Pleurisy [Unknown]
  - Dyspnoea [Unknown]
  - Pneumonia [Unknown]
  - Alpha-1 anti-trypsin deficiency [Not Recovered/Not Resolved]
  - Chronic obstructive pulmonary disease [Not Recovered/Not Resolved]
  - Emphysema [Not Recovered/Not Resolved]
